FAERS Safety Report 18575978 (Version 2)
Quarter: 2020Q4

REPORT INFORMATION
  Report Type: Spontaneous
  Country: RO (occurrence: RO)
  Receive Date: 20201203
  Receipt Date: 20201207
  Transmission Date: 20210114
  Serious: Yes (Hospitalization, Other)
  Sender: FDA-Public Use
  Company Number: RO-009507513-2012ROM001283

PATIENT
  Age: 66 Year
  Sex: Male

DRUGS (1)
  1. PEMBROLIZUMAB. [Suspect]
     Active Substance: PEMBROLIZUMAB
     Indication: LUNG CARCINOMA CELL TYPE UNSPECIFIED STAGE IV
     Dosage: 200 MILLIGRAM, Q3W
     Dates: start: 201901

REACTIONS (9)
  - Rash papular [Unknown]
  - Pneumonitis [Unknown]
  - Streptococcus test positive [Unknown]
  - Pneumonia [Unknown]
  - Therapy partial responder [Unknown]
  - Hepatic steatosis [Unknown]
  - Malignant neoplasm progression [Unknown]
  - Hypothyroidism [Unknown]
  - Primary hypogonadism [Unknown]

NARRATIVE: CASE EVENT DATE: 20190115
